FAERS Safety Report 17287494 (Version 1)
Quarter: 2020Q1

REPORT INFORMATION
  Report Type: Report from Study
  Country: None (occurrence: FR)
  Receive Date: 20200120
  Receipt Date: 20200120
  Transmission Date: 20200409
  Serious: Yes (Hospitalization)
  Sender: FDA-Public Use
  Company Number: FR-ABBVIE-20K-056-3238852-00

PATIENT
  Age: 60 Year
  Sex: Male

DRUGS (4)
  1. IMBRUVICA [Suspect]
     Active Substance: IBRUTINIB
     Route: 048
     Dates: start: 201703
  2. ZELITREX [Concomitant]
     Active Substance: VALACYCLOVIR HYDROCHLORIDE
     Indication: PRODUCT USED FOR UNKNOWN INDICATION
     Route: 048
  3. IMBRUVICA [Suspect]
     Active Substance: IBRUTINIB
     Indication: MANTLE CELL LYMPHOMA REFRACTORY
     Route: 048
  4. IMBRUVICA [Suspect]
     Active Substance: IBRUTINIB
     Indication: MANTLE CELL LYMPHOMA
     Route: 048
     Dates: start: 20170112

REACTIONS (1)
  - Lung disorder [Recovered/Resolved]

NARRATIVE: CASE EVENT DATE: 20191018
